FAERS Safety Report 16017341 (Version 1)
Quarter: 2019Q1

REPORT INFORMATION
  Report Type: Report from Study
  Country: FR (occurrence: FR)
  Receive Date: 20190228
  Receipt Date: 20190228
  Transmission Date: 20190418
  Serious: Yes (Hospitalization)
  Sender: FDA-Public Use
  Company Number: FR-INTERCEPT-PM2019000274

PATIENT

DRUGS (8)
  1. OBETICHOLIC ACID [Suspect]
     Active Substance: OBETICHOLIC ACID
     Indication: PRIMARY BILIARY CHOLANGITIS
     Dosage: UNK
     Route: 065
     Dates: end: 20171026
  2. ENTOCORT [Concomitant]
     Active Substance: BUDESONIDE
     Dosage: 3 MG, TID
  3. PROPRANOLOL [Concomitant]
     Active Substance: PROPRANOLOL HYDROCHLORIDE
     Dosage: 160 MG, QD
  4. DELURSAN [Concomitant]
     Active Substance: URSODIOL
     Dosage: 500 MG, BID
  5. ESOMEPRAZOLE. [Concomitant]
     Active Substance: ESOMEPRAZOLE MAGNESIUM
     Dosage: 40 UNK, QD
  6. TRIMEBUTINE [Concomitant]
     Active Substance: TRIMEBUTINE
     Dosage: 200 MG, TID
  7. CELLCEPT [Concomitant]
     Active Substance: MYCOPHENOLATE MOFETIL\MYCOPHENOLATE MOFETIL HYDROCHLORIDE
  8. RIFADINE [Concomitant]
     Active Substance: RIFAMPIN
     Indication: PRURITUS
     Dosage: 300 UNK, QD

REACTIONS (12)
  - Oedema peripheral [Recovered/Resolved]
  - Erythema [Unknown]
  - Pruritus [Unknown]
  - Ascites [Recovered/Resolved]
  - Oesophageal varices haemorrhage [Unknown]
  - Diarrhoea [Recovered/Resolved]
  - Cardiac failure acute [Recovered/Resolved]
  - Dehydration [Recovered/Resolved]
  - Skin papilloma [Unknown]
  - Ascites [Not Recovered/Not Resolved]
  - Splenomegaly [Unknown]
  - Fatigue [Unknown]

NARRATIVE: CASE EVENT DATE: 201611
